FAERS Safety Report 7260569-9 (Version None)
Quarter: 2011Q1

REPORT INFORMATION
  Report Type: 
  Country: None (occurrence: None)
  Receive Date: 20110130
  Receipt Date: 20101220
  Transmission Date: 20110831
  Serious: No
  Sender: FDA-Public Use
  Company Number: US-ABBOTT-10P-163-0692784-00

PATIENT
  Age: 54 Year
  Sex: Female

DRUGS (7)
  1. CITALOPRAM [Concomitant]
     Indication: ANXIETY
  2. CITALOPRAM [Concomitant]
     Indication: MENOPAUSE
  3. MELOXICAM [Concomitant]
     Indication: ARTHRITIS
  4. DIGOXIN [Concomitant]
     Indication: CARDIAC DISORDER
  5. DILTIAZEM [Concomitant]
     Indication: CARDIAC DISORDER
  6. ORACEA [Concomitant]
     Indication: SKIN DISORDER
  7. HUMIRA [Suspect]
     Indication: PSORIATIC ARTHROPATHY
     Dates: start: 20101101

REACTIONS (1)
  - NASOPHARYNGITIS [None]
